FAERS Safety Report 15295994 (Version 1)
Quarter: 2018Q3

REPORT INFORMATION
  Report Type: Spontaneous
  Country: US (occurrence: US)
  Receive Date: 20180820
  Receipt Date: 20180820
  Transmission Date: 20181010
  Serious: No
  Sender: FDA-Public Use
  Company Number: US-MYLANLABS-2018M1061298

PATIENT
  Sex: Male
  Weight: 81 kg

DRUGS (2)
  1. LORAZEPAM. [Suspect]
     Active Substance: LORAZEPAM
     Dosage: 0.5 MG, UNK
     Route: 048
     Dates: end: 20180502
  2. LORAZEPAM. [Suspect]
     Active Substance: LORAZEPAM
     Indication: PRODUCT USED FOR UNKNOWN INDICATION
     Dosage: 1 MG, UNK
     Route: 048

REACTIONS (7)
  - Depression [Recovering/Resolving]
  - Dizziness [Not Recovered/Not Resolved]
  - Memory impairment [Unknown]
  - Weight increased [Not Recovered/Not Resolved]
  - Decreased interest [Recovering/Resolving]
  - Anxiety [Not Recovered/Not Resolved]
  - Panic attack [Unknown]
